FAERS Safety Report 24907396 (Version 1)
Quarter: 2025Q1

REPORT INFORMATION
  Report Type: Spontaneous
  Country: CZ (occurrence: CZ)
  Receive Date: 20250130
  Receipt Date: 20250130
  Transmission Date: 20250409
  Serious: Yes (Other)
  Sender: ORGANON
  Company Number: None

PATIENT
  Age: 3 Year
  Sex: Male
  Weight: 14.7 kg

DRUGS (1)
  1. EBASTINE [Suspect]
     Active Substance: EBASTINE
     Indication: Eczema
     Dosage: LONG-TERM MEDICATION, THE PRESCRIPTION WAS 5 ML/1 SPOON EVERY DAY
     Route: 048

REACTIONS (6)
  - Localised oedema [Recovered/Resolved with Sequelae]
  - Drug hypersensitivity [Recovered/Resolved with Sequelae]
  - Mood altered [Recovered/Resolved with Sequelae]
  - Lymphadenopathy [Recovered/Resolved with Sequelae]
  - Oedema [Recovered/Resolved with Sequelae]
  - Tearfulness [Recovered/Resolved with Sequelae]
